FAERS Safety Report 14742451 (Version 2)
Quarter: 2018Q2

REPORT INFORMATION
  Report Type: Spontaneous
  Country: AR (occurrence: AR)
  Receive Date: 20180410
  Receipt Date: 20180416
  Transmission Date: 20180711
  Serious: Yes (Other)
  Sender: FDA-Public Use
  Company Number: AR-PFIZER INC-2018121413

PATIENT
  Age: 85 Year
  Sex: Male

DRUGS (4)
  1. TRITACE [Suspect]
     Active Substance: RAMIPRIL
     Dosage: UNK
     Route: 048
  2. ISOBLOC [Suspect]
     Active Substance: CARVEDILOL
     Dosage: UNK
     Route: 065
  3. PLAVIX [Suspect]
     Active Substance: CLOPIDOGREL BISULFATE
     Dosage: UNK
     Route: 048
  4. ELIQUIS [Suspect]
     Active Substance: APIXABAN
     Indication: CEREBROVASCULAR ACCIDENT PROPHYLAXIS
     Dosage: 2.5 MG, 2X/DAY
     Route: 065
     Dates: start: 20180314

REACTIONS (2)
  - Wound haemorrhage [Unknown]
  - Pruritus [Unknown]
